FAERS Safety Report 4635086-2 (Version None)
Quarter: 2005Q2

REPORT INFORMATION
  Report Type: 
  Country: None (occurrence: None)
  Receive Date: 20050414
  Receipt Date: 20050209
  Transmission Date: 20051028
  Serious: Yes (Hospitalization, Other)
  Sender: FDA-Public Use
  Company Number: PHBS2005JP02241

PATIENT
  Age: 32 Year
  Sex: Male
  Weight: 56 kg

DRUGS (12)
  1. TEGRETOL [Suspect]
     Indication: EPILEPSY
     Dosage: 400 MG, BID
     Route: 048
     Dates: start: 19880901, end: 20050204
  2. TEGRETOL [Suspect]
     Dosage: 200 MG, BID
     Route: 048
     Dates: start: 20050217
  3. ONON [Concomitant]
     Indication: ASTHMA
     Dosage: 337.5 MG/DAY
     Route: 048
  4. ATARAX [Concomitant]
     Indication: ACNE
     Dosage: 10 MG/DAY
     Route: 048
  5. MUCODYNE [Concomitant]
     Indication: BRONCHITIS
     Dosage: 1000 MG/DAY
     Route: 048
  6. CERCINE [Concomitant]
     Indication: INSOMNIA
     Dosage: 5 MG/DAY
     Route: 048
  7. MAGNESIUM OXIDE [Concomitant]
     Indication: CONSTIPATION
     Dosage: 1.5 G/DAY
     Route: 048
  8. CYANOCOBALAMIN [Concomitant]
     Dosage: 1000 UG/DAY
     Route: 048
  9. MELATONIN [Concomitant]
     Dosage: 2 MG/DAY
     Route: 048
  10. HIRNAMIN [Concomitant]
     Indication: RESTLESSNESS
     Dosage: 10 MG/DAY
     Route: 048
     Dates: start: 20041019, end: 20050215
  11. DEPAS [Concomitant]
     Indication: RESTLESSNESS
     Dosage: 1 MG/DAY
     Route: 048
     Dates: start: 20041019
  12. LEXOTAN [Concomitant]
     Indication: RESTLESSNESS
     Dosage: 4 MG/DAY
     Route: 048
     Dates: start: 20041019

REACTIONS (13)
  - BRADYCARDIA [None]
  - GAMMA-GLUTAMYLTRANSFERASE INCREASED [None]
  - HAEMOGLOBIN DECREASED [None]
  - HEART RATE DECREASED [None]
  - HEART RATE IRREGULAR [None]
  - PANCYTOPENIA [None]
  - PLATELET COUNT DECREASED [None]
  - PNEUMONIA [None]
  - PSYCHOMOTOR HYPERACTIVITY [None]
  - REFUSAL OF TREATMENT BY RELATIVE [None]
  - SICK SINUS SYNDROME [None]
  - UPPER GASTROINTESTINAL HAEMORRHAGE [None]
  - WHITE BLOOD CELL COUNT DECREASED [None]
